FAERS Safety Report 4549333-9 (Version None)
Quarter: 2005Q1

REPORT INFORMATION
  Report Type: 
  Country: None (occurrence: None)
  Receive Date: 20050106
  Receipt Date: 20050103
  Transmission Date: 20050727
  Serious: Yes (Life-Threatening, Hospitalization)
  Sender: FDA-Public Use
  Company Number: 2004CG02127

PATIENT
  Age: 56 Year
  Sex: Male
  Weight: 79 kg

DRUGS (7)
  1. DIPRIVAN [Suspect]
     Indication: SEDATION
     Dosage: 200 MG IV
     Route: 042
     Dates: start: 20041018, end: 20041018
  2. ATACAND [Concomitant]
  3. PRAVASTATIN [Concomitant]
  4. KARDEGIC [Concomitant]
  5. AMLOR [Concomitant]
  6. ALLOPURINOL [Concomitant]
  7. MIDAZOLAM HCL [Concomitant]

REACTIONS (5)
  - ANURIA [None]
  - BILE DUCT STONE [None]
  - HAEMODIALYSIS [None]
  - PANCREATITIS ACUTE [None]
  - SHOCK [None]
